FAERS Safety Report 20739625 (Version 1)
Quarter: 2022Q2

REPORT INFORMATION
  Report Type: Spontaneous
  Country: US (occurrence: None)
  Receive Date: 20220421
  Receipt Date: 20220421
  Transmission Date: 20220721
  Serious: Yes (Other)
  Sender: FDA-Public Use
  Company Number: None

PATIENT
  Age: 63 Year
  Sex: Male
  Weight: 76 kg

DRUGS (1)
  1. BRENTUXIMAB [Suspect]
     Active Substance: BRENTUXIMAB
     Dates: start: 20220311, end: 20220311

REACTIONS (10)
  - Hypertransaminasaemia [None]
  - Hyperbilirubinaemia [None]
  - Liver injury [None]
  - Stomatitis [None]
  - Necrosis [None]
  - Neck mass [None]
  - Sepsis [None]
  - Pancytopenia [None]
  - Disseminated intravascular coagulation [None]
  - Respiratory failure [None]

NARRATIVE: CASE EVENT DATE: 20220320
